FAERS Safety Report 5840117-8 (Version None)
Quarter: 2008Q3

REPORT INFORMATION
  Report Type: 
  Country: None (occurrence: None)
  Receive Date: 20080811
  Receipt Date: 20080806
  Transmission Date: 20090109
  Serious: Yes (Hospitalization)
  Sender: FDA-Public Use
  Company Number: US-BRISTOL-MYERS SQUIBB COMPANY-14290837

PATIENT
  Age: 59 Year
  Sex: Male
  Weight: 102 kg

DRUGS (3)
  1. CETUXIMAB [Suspect]
     Indication: PHARYNGEAL CANCER STAGE UNSPECIFIED
     Dosage: START DATE OF FIRST COURSE: 23-JUN-2008.
     Dates: start: 20080721, end: 20080721
  2. CISPLATIN [Suspect]
     Indication: PHARYNGEAL CANCER STAGE UNSPECIFIED
     Dosage: START DATE OF FIRST COURSE: 23-JUN-2008.
     Dates: start: 20080721, end: 20080721
  3. RADIATION THERAPY [Suspect]
     Indication: PHARYNGEAL CANCER STAGE UNSPECIFIED
     Dosage: 44 DOSAGE FORM = 44 GY. NUMBER OF FRACTIONS: 35. NUMBER OF ELASPSED DAYS: 24.
     Dates: start: 20080724, end: 20080724

REACTIONS (8)
  - CATHETER RELATED INFECTION [None]
  - DEHYDRATION [None]
  - DRY MOUTH [None]
  - DYSPHAGIA [None]
  - MUCOSAL INFLAMMATION [None]
  - NAUSEA [None]
  - OROPHARYNGEAL PAIN [None]
  - VOMITING [None]
